FAERS Safety Report 4521960-4 (Version None)
Quarter: 2004Q4

REPORT INFORMATION
  Report Type: 
  Country: None (occurrence: None)
  Receive Date: 20041206
  Receipt Date: 20041122
  Transmission Date: 20050328
  Serious: Yes (Life-Threatening)
  Sender: FDA-Public Use
  Company Number: 2004208369FR

PATIENT
  Age: 53 Year
  Sex: Female
  Weight: 70 kg

DRUGS (5)
  1. CLINDAMYCIN PHOSPHATE [Suspect]
     Indication: ILL-DEFINED DISORDER
     Dosage: 600 MG (1 IN 1 TOTAL), INTRAVENOUS
     Route: 042
     Dates: start: 20040223, end: 20040223
  2. SUXAMETHONIUM CHLORIDE (SUXAMETHONIUM CHLORIDE) [Suspect]
     Indication: ILL-DEFINED DISORDER
     Dosage: 70 MG ( 1 IN 1 TOTAL), INTRAVENOUS
     Route: 042
     Dates: start: 20040223, end: 20040223
  3. SUFENTANIL CITRATE [Suspect]
     Indication: ILL-DEFINED DISORDER
     Dosage: 15 MCG (1 IN 1 TOTAL), INTRAVENOUS
     Route: 042
     Dates: start: 20040223, end: 20040223
  4. LIDOCAINE HYDROCHLORIDE [Concomitant]
  5. PROPOFOL [Concomitant]

REACTIONS (8)
  - ANAESTHETIC COMPLICATION [None]
  - BLOOD PRESSURE IMMEASURABLE [None]
  - CARDIOVASCULAR DISORDER [None]
  - CYTOLYTIC HEPATITIS [None]
  - HEART RATE DECREASED [None]
  - HYPOXIA [None]
  - LACTIC ACIDOSIS [None]
  - RENAL DISORDER [None]
